FAERS Safety Report 15331324 (Version 3)
Quarter: 2024Q3

REPORT INFORMATION
  Report Type: Spontaneous
  Country: US (occurrence: US)
  Receive Date: 20180829
  Receipt Date: 20240905
  Transmission Date: 20241017
  Serious: Yes (Death, Other)
  Sender: TEVA
  Company Number: US-TEVA-2018-US-949344

PATIENT
  Sex: Male

DRUGS (10)
  1. OXYCODONE HYDROCHLORIDE [Suspect]
     Active Substance: OXYCODONE HYDROCHLORIDE
     Route: 065
  2. OXYCODONE HYDROCHLORIDE [Suspect]
     Active Substance: OXYCODONE HYDROCHLORIDE
     Route: 065
  3. CLONAZEPAM [Suspect]
     Active Substance: CLONAZEPAM
     Route: 065
  4. PERCOCET [Suspect]
     Active Substance: ACETAMINOPHEN\OXYCODONE HYDROCHLORIDE
     Route: 065
  5. METHYLPREDNISOLONE [Suspect]
     Active Substance: METHYLPREDNISOLONE
     Route: 065
  6. LISINOPRIL [Suspect]
     Active Substance: LISINOPRIL
     Route: 065
  7. SERTRALINE [Suspect]
     Active Substance: SERTRALINE HYDROCHLORIDE
     Route: 065
  8. CARISOPRODOL [Suspect]
     Active Substance: CARISOPRODOL
     Route: 065
  9. HYDROCODONE [Suspect]
     Active Substance: HYDROCODONE
     Route: 065
  10. FLEXERIL [Suspect]
     Active Substance: CYCLOBENZAPRINE HYDROCHLORIDE
     Route: 065

REACTIONS (5)
  - Toxicity to various agents [Fatal]
  - Drug dependence [Unknown]
  - Unresponsive to stimuli [Unknown]
  - Pulse absent [Unknown]
  - Apnoea [Unknown]

NARRATIVE: CASE EVENT DATE: 20150522
